FAERS Safety Report 9667687 (Version 1)
Quarter: 2013Q4

REPORT INFORMATION
  Report Type: Spontaneous
  Country: US (occurrence: US)
  Receive Date: 20131101
  Receipt Date: 20131101
  Transmission Date: 20140711
  Serious: Yes (Other)
  Sender: FDA-Public Use
  Company Number: US-ORACLE-2012S1000034

PATIENT
  Age: 72 Year
  Sex: Male
  Weight: 90.72 kg

DRUGS (5)
  1. KRYSTEXXA INJECTION [Suspect]
     Indication: GOUT
     Route: 042
     Dates: start: 20120315, end: 20120412
  2. COLCHICINE [Concomitant]
     Indication: GOUT
  3. SOLUMEDROL [Concomitant]
     Indication: PREMEDICATION
     Route: 042
     Dates: start: 20120315, end: 20120412
  4. TYLENOL /00020001/ [Concomitant]
     Indication: PREMEDICATION
     Dates: start: 20120315, end: 20120412
  5. CLARITIN /00917501/ [Concomitant]
     Indication: PREMEDICATION
     Dates: start: 20120315, end: 20120412

REACTIONS (1)
  - Infusion related reaction [Recovered/Resolved]
